FAERS Safety Report 5767846-9 (Version None)
Quarter: 2008Q2

REPORT INFORMATION
  Report Type: 
  Country: None (occurrence: None)
  Receive Date: 20080612
  Receipt Date: 20080609
  Transmission Date: 20081010
  Serious: Yes (Hospitalization)
  Sender: FDA-Public Use
  Company Number: PHHY2008DE10322

PATIENT
  Sex: Female

DRUGS (3)
  1. RASILEZ [Suspect]
     Dosage: UNK
     Dates: end: 20080501
  2. HYDROCHLOROTHIAZIDE [Suspect]
     Dosage: 25 MG DAILY
     Dates: end: 20080513
  3. SPIRONOLACTONE [Suspect]
     Dosage: UNK
     Dates: end: 20080513

REACTIONS (3)
  - HYPONATRAEMIA [None]
  - NAUSEA [None]
  - VOMITING [None]
